FAERS Safety Report 12042340 (Version 2)
Quarter: 2016Q2

REPORT INFORMATION
  Report Type: Spontaneous
  Country: US (occurrence: US)
  Receive Date: 20160208
  Receipt Date: 20160502
  Transmission Date: 20160815
  Serious: Yes (Hospitalization, Other)
  Sender: FDA-Public Use
  Company Number: US-BIOGEN-2008BI002846

PATIENT
  Age: 65 Year
  Sex: Female
  Weight: 72.64 kg

DRUGS (6)
  1. AVONEX [Suspect]
     Active Substance: INTERFERON BETA-1A
     Route: 030
     Dates: start: 20070307, end: 20071107
  2. LEXAPRO [Concomitant]
     Active Substance: ESCITALOPRAM OXALATE
     Indication: PRODUCT USED FOR UNKNOWN INDICATION
     Route: 065
  3. AVONEX [Suspect]
     Active Substance: INTERFERON BETA-1A
     Indication: MULTIPLE SCLEROSIS
     Route: 030
     Dates: start: 19981116, end: 20061101
  4. AVONEX [Suspect]
     Active Substance: INTERFERON BETA-1A
     Route: 030
     Dates: start: 20080227
  5. AVONEX [Suspect]
     Active Substance: INTERFERON BETA-1A
     Route: 065
  6. RHINOCORT [Concomitant]
     Active Substance: BUDESONIDE
     Indication: SINUSITIS
     Route: 065

REACTIONS (17)
  - Asthma [Not Recovered/Not Resolved]
  - Cataract [Not Recovered/Not Resolved]
  - Headache [Not Recovered/Not Resolved]
  - Influenza [Recovered/Resolved]
  - Eye inflammation [Not Recovered/Not Resolved]
  - Lipoma [Recovered/Resolved]
  - Ear infection [Not Recovered/Not Resolved]
  - Uveitis [Recovered/Resolved]
  - Retinopathy proliferative [Unknown]
  - Chronic obstructive pulmonary disease [Not Recovered/Not Resolved]
  - Nasopharyngitis [Not Recovered/Not Resolved]
  - Sleep disorder [Not Recovered/Not Resolved]
  - Pain [Not Recovered/Not Resolved]
  - Retinal detachment [Recovered/Resolved]
  - Blindness unilateral [Not Recovered/Not Resolved]
  - Retinal ischaemia [Unknown]
  - Memory impairment [Not Recovered/Not Resolved]

NARRATIVE: CASE EVENT DATE: 1999
